FAERS Safety Report 6097633-6 (Version None)
Quarter: 2009Q1

REPORT INFORMATION
  Report Type: 
  Country: None (occurrence: None)
  Receive Date: 20090227
  Receipt Date: 20090224
  Transmission Date: 20090719
  Serious: Yes (Other)
  Sender: FDA-Public Use
  Company Number: US-WYE-H08327909

PATIENT
  Age: 56 Year
  Sex: Female

DRUGS (1)
  1. ADVIL [Suspect]

REACTIONS (4)
  - DYSPNOEA [None]
  - HYPERSENSITIVITY [None]
  - THROAT TIGHTNESS [None]
  - URTICARIA [None]
